FAERS Safety Report 9563705 (Version 1)
Quarter: 2013Q3

REPORT INFORMATION
  Report Type: Spontaneous
  Country: US (occurrence: None)
  Receive Date: 20130918
  Receipt Date: 20130918
  Transmission Date: 20140515
  Serious: Yes (Death)
  Sender: FDA-Public Use
  Company Number: 54973 AE 1503

PATIENT
  Age: 7 Month
  Sex: Male

DRUGS (1)
  1. HYLAND^S [Suspect]
     Indication: NASOPHARYNGITIS
     Dosage: DOSE X 4 DAYS

REACTIONS (1)
  - Death [None]
